FAERS Safety Report 16090537 (Version 1)
Quarter: 2019Q1

REPORT INFORMATION
  Report Type: Spontaneous
  Country: DE (occurrence: DE)
  Receive Date: 20190319
  Receipt Date: 20190319
  Transmission Date: 20190418
  Serious: Yes (Life-Threatening, Other)
  Sender: FDA-Public Use
  Company Number: DE-TEVA-2019-DE-1024144

PATIENT
  Age: 50 Year
  Sex: Male
  Weight: 80 kg

DRUGS (4)
  1. PROFOL [Concomitant]
     Active Substance: PROPOFOL
     Route: 042
  2. LEVOFLOXACIN. [Suspect]
     Active Substance: LEVOFLOXACIN
     Route: 042
     Dates: start: 20190201
  3. SUFENTANIL [Concomitant]
     Active Substance: SUFENTANIL
     Route: 042
  4. ATRACURIUM [Concomitant]
     Active Substance: ATRACURIUM
     Route: 042

REACTIONS (3)
  - Anaphylactic shock [Recovered/Resolved]
  - Fluid retention [Recovered/Resolved]
  - Flushing [Recovered/Resolved]

NARRATIVE: CASE EVENT DATE: 20190201
